FAERS Safety Report 5290949-2 (Version None)
Quarter: 2007Q2

REPORT INFORMATION
  Report Type: 
  Country: None (occurrence: None)
  Receive Date: 20070409
  Receipt Date: 20070305
  Transmission Date: 20071010
  Serious: Yes (Hospitalization)
  Sender: FDA-Public Use
  Company Number: AT-NOVOPROD-261351

PATIENT
  Age: 61 Year
  Sex: Female

DRUGS (1)
  1. INSULATARD [Suspect]
     Indication: DIABETES MELLITUS

REACTIONS (1)
  - PANNICULITIS [None]
